FAERS Safety Report 8624539-8 (Version None)
Quarter: 2012Q3

REPORT INFORMATION
  Report Type: 
  Country: None (occurrence: None)
  Receive Date: 20120827
  Receipt Date: 20120822
  Transmission Date: 20120928
  Serious: Yes (Other)
  Sender: FDA-Public Use
  Company Number: US-JNJFOC-20120810962

PATIENT
  Sex: Female
  Weight: 70.76 kg

DRUGS (7)
  1. XANAX [Concomitant]
     Indication: ANXIETY
     Dosage: AS NEEDED
     Route: 048
  2. NUCYNTA ER [Suspect]
     Dosage: TWICE A DAY
     Route: 048
     Dates: start: 20120201
  3. WELLBUTRIN [Concomitant]
     Indication: DEPRESSION
     Dosage: ONCE A DAY
     Route: 048
  4. NUCYNTA ER [Suspect]
     Indication: PAIN
     Route: 048
  5. HYDROCODONE [Suspect]
     Indication: PAIN
     Dosage: AS NEEDED
     Route: 048
  6. FLUOXETINE HYDROCHLORIDE [Concomitant]
     Indication: DEPRESSION
     Dosage: EVERY OTHER DAY
     Route: 048
  7. TOPIRAMATE [Concomitant]
     Indication: PRODUCT USED FOR UNKNOWN INDICATION
     Dosage: 1/2 TABLE ONCE A DAY
     Route: 048

REACTIONS (6)
  - MENISCUS LESION [None]
  - CHEST X-RAY ABNORMAL [None]
  - GAIT DISTURBANCE [None]
  - BACK PAIN [None]
  - BREAST CANCER [None]
  - DRUG DOSE OMISSION [None]
